FAERS Safety Report 4550909-3 (Version None)
Quarter: 2004Q4

REPORT INFORMATION
  Report Type: 
  Country: None (occurrence: None)
  Receive Date: 20041217
  Receipt Date: 20040908
  Transmission Date: 20050328
  Serious: No
  Sender: FDA-Public Use
  Company Number: 2004-BP-07957BP

PATIENT
  Sex: Female

DRUGS (4)
  1. SPIRIVA [Suspect]
     Indication: BRONCHIOLITIS
     Dosage: 18 MCG (18 MCG, 1 IN 1 D), PO
     Route: 048
     Dates: start: 20040625
  2. SPIRIVA [Suspect]
  3. ADVAIR (SERETIDE MITE) [Concomitant]
  4. FOSAMAX [Concomitant]

REACTIONS (2)
  - DRY MOUTH [None]
  - HOARSENESS [None]
